FAERS Safety Report 5425179-4 (Version None)
Quarter: 2007Q3

REPORT INFORMATION
  Report Type: 
  Country: None (occurrence: None)
  Receive Date: 20070824
  Receipt Date: 20070813
  Transmission Date: 20080115
  Serious: Yes (Hospitalization)
  Sender: FDA-Public Use
  Company Number: CN-ROCHE-511802

PATIENT
  Age: 4 Month
  Sex: Male

DRUGS (1)
  1. ROCEPHIN [Suspect]
     Indication: SKIN INFECTION
     Dosage: ROUTE REPORTED: IVGTT
     Route: 042
     Dates: start: 20070806, end: 20070806

REACTIONS (2)
  - ANAPHYLACTIC SHOCK [None]
  - URTICARIA [None]
